FAERS Safety Report 12170228 (Version 3)
Quarter: 2016Q3

REPORT INFORMATION
  Report Type: Spontaneous
  Country: IT (occurrence: IT)
  Receive Date: 20160311
  Receipt Date: 20160722
  Transmission Date: 20161109
  Serious: Yes (Hospitalization)
  Sender: FDA-Public Use
  Company Number: IT-ALVOGEN-2016-ALVOGEN-022773

PATIENT
  Age: 59 Year
  Sex: Female

DRUGS (6)
  1. CRESTOR [Concomitant]
     Active Substance: ROSUVASTATIN CALCIUM
     Indication: PRODUCT USED FOR UNKNOWN INDICATION
  2. NORVASC [Suspect]
     Active Substance: AMLODIPINE BESYLATE
     Indication: SUICIDE ATTEMPT
     Dosage: 4 TABLETS OF 10 MG
     Route: 048
     Dates: start: 20160103, end: 20160103
  3. CARDIOASPIRIN [Concomitant]
     Active Substance: ASPIRIN
     Indication: PRODUCT USED FOR UNKNOWN INDICATION
  4. METFORMIN [Suspect]
     Active Substance: METFORMIN HYDROCHLORIDE
     Indication: SUICIDE ATTEMPT
     Dosage: 5 TABLETS OF 500 MG
     Route: 048
     Dates: start: 20160103, end: 20160103
  5. ATENOLOL. [Suspect]
     Active Substance: ATENOLOL
     Indication: SUICIDE ATTEMPT
     Dosage: 7 TABLETS OF 100?MG
     Route: 048
     Dates: start: 20160103, end: 20160103
  6. BLOPRESID [Concomitant]
     Active Substance: CANDESARTAN CILEXETIL\HYDROCHLOROTHIAZIDE
     Indication: PRODUCT USED FOR UNKNOWN INDICATION
     Dosage: 16/12.5 MG

REACTIONS (5)
  - Drug abuse [Recovering/Resolving]
  - Anxiety [Unknown]
  - Depressed mood [Unknown]
  - Affect lability [Unknown]
  - Suicide attempt [Recovering/Resolving]

NARRATIVE: CASE EVENT DATE: 20160103
